FAERS Safety Report 19414948 (Version 1)
Quarter: 2021Q2

REPORT INFORMATION
  Report Type: Spontaneous
  Country: US (occurrence: US)
  Receive Date: 20210615
  Receipt Date: 20210615
  Transmission Date: 20210717
  Serious: No
  Sender: FDA-Public Use
  Company Number: US-APOTEX-2021AP011426

PATIENT
  Sex: Female

DRUGS (2)
  1. FLUVOXAMINE MALEATE TABLETS [Suspect]
     Active Substance: FLUVOXAMINE MALEATE
     Dosage: HALF A PILL DAILY
     Route: 065
  2. FLUVOXAMINE MALEATE TABLETS [Suspect]
     Active Substance: FLUVOXAMINE MALEATE
     Indication: PRODUCT USED FOR UNKNOWN INDICATION
     Dosage: 50 MILLIGRAM, Q.H.S.
     Route: 065

REACTIONS (4)
  - Depression [Unknown]
  - Muscle twitching [Unknown]
  - Burning sensation [Unknown]
  - Muscle spasms [Unknown]
